FAERS Safety Report 26146233 (Version 2)
Quarter: 2025Q4

REPORT INFORMATION
  Report Type: Report from Study
  Country: CN (occurrence: CN)
  Receive Date: 20251211
  Receipt Date: 20251218
  Transmission Date: 20260117
  Serious: Yes (Death, Other)
  Sender: JOHNSON AND JOHNSON
  Company Number: CN-JNJFOC-20251212032

PATIENT

DRUGS (12)
  1. REMICADE [Suspect]
     Active Substance: INFLIXIMAB
     Indication: Juvenile idiopathic arthritis
     Route: 041
  2. REMICADE [Suspect]
     Active Substance: INFLIXIMAB
     Indication: Ankylosing spondylitis
  3. REMICADE [Suspect]
     Active Substance: INFLIXIMAB
     Indication: Psoriatic arthropathy
  4. REMICADE [Suspect]
     Active Substance: INFLIXIMAB
     Indication: Psoriasis
  5. REMICADE [Suspect]
     Active Substance: INFLIXIMAB
     Indication: Crohn^s disease
  6. REMICADE [Suspect]
     Active Substance: INFLIXIMAB
     Indication: Rheumatoid arthritis
  7. SIMPONI [Suspect]
     Active Substance: GOLIMUMAB
     Indication: Psoriasis
     Route: 058
  8. SIMPONI [Suspect]
     Active Substance: GOLIMUMAB
     Indication: Psoriatic arthropathy
  9. SIMPONI [Suspect]
     Active Substance: GOLIMUMAB
     Indication: Juvenile idiopathic arthritis
  10. SIMPONI [Suspect]
     Active Substance: GOLIMUMAB
     Indication: Ankylosing spondylitis
  11. SIMPONI [Suspect]
     Active Substance: GOLIMUMAB
     Indication: Crohn^s disease
  12. SIMPONI [Suspect]
     Active Substance: GOLIMUMAB
     Indication: Rheumatoid arthritis

REACTIONS (18)
  - Infection [Fatal]
  - Leishmaniasis [Unknown]
  - Disseminated tuberculosis [Unknown]
  - Histoplasmosis disseminated [Unknown]
  - Pulmonary tuberculosis [Unknown]
  - Intestinal tuberculosis [Unknown]
  - Tuberculous pleurisy [Unknown]
  - Peritoneal tuberculosis [Unknown]
  - Leprosy [Unknown]
  - Lower respiratory tract infection [Unknown]
  - Erysipelas [Unknown]
  - Lymph node tuberculosis [Unknown]
  - Tuberculosis [Unknown]
  - Dengue fever [Unknown]
  - Chikungunya virus infection [Unknown]
  - Latent tuberculosis [Unknown]
  - Tonsillitis [Unknown]
  - Herpes virus infection [Unknown]
